FAERS Safety Report 11941830 (Version 1)
Quarter: 2016Q1

REPORT INFORMATION
  Report Type: Spontaneous
  Country: GB (occurrence: GB)
  Receive Date: 20160124
  Receipt Date: 20160124
  Transmission Date: 20160526
  Serious: Yes (Other)
  Sender: FDA-Public Use
  Company Number: GB-DEXPHARM-20160056

PATIENT
  Age: 56 Year
  Sex: Female
  Weight: 91.2 kg

DRUGS (8)
  1. LISINOPRIL. [Concomitant]
     Active Substance: LISINOPRIL
  2. ATORVASTATIN [Concomitant]
     Active Substance: ATORVASTATIN
  3. METFORMIN [Concomitant]
     Active Substance: METFORMIN HYDROCHLORIDE
  4. AMLODIPINE [Concomitant]
     Active Substance: AMLODIPINE BESYLATE
  5. OMEPRAZOLE. [Suspect]
     Active Substance: OMEPRAZOLE
     Indication: DYSPEPSIA
     Route: 048
     Dates: start: 20151201
  6. BETAHISTINE [Concomitant]
     Active Substance: BETAHISTINE
  7. GABAPENTIN. [Concomitant]
     Active Substance: GABAPENTIN
  8. PAROXETINE [Concomitant]
     Active Substance: PAROXETINE\PAROXETINE HYDROCHLORIDE

REACTIONS (3)
  - Polyarthritis [Recovering/Resolving]
  - Arthralgia [Recovering/Resolving]
  - Peripheral swelling [Recovered/Resolved]

NARRATIVE: CASE EVENT DATE: 20151203
